FAERS Safety Report 6938194-6 (Version None)
Quarter: 2010Q3

REPORT INFORMATION
  Report Type: 
  Country: None (occurrence: None)
  Receive Date: 20100824
  Receipt Date: 20100819
  Transmission Date: 20110219
  Serious: Yes (Life-Threatening, Hospitalization)
  Sender: FDA-Public Use
  Company Number: FI-JNJFOC-20100806722

PATIENT
  Sex: Female

DRUGS (1)
  1. DURAGESIC-100 [Suspect]
     Indication: PAIN MANAGEMENT
     Route: 048

REACTIONS (14)
  - ANXIETY [None]
  - CARDIOVASCULAR DISORDER [None]
  - DELIRIUM [None]
  - DRUG ABUSE [None]
  - HYPERTENSION [None]
  - HYPOXIA [None]
  - INTENTIONAL DRUG MISUSE [None]
  - LOSS OF CONSCIOUSNESS [None]
  - MYOCARDIAL INFARCTION [None]
  - PNEUMONIA [None]
  - POISONING [None]
  - RENAL FAILURE [None]
  - RESPIRATORY RATE DECREASED [None]
  - WITHDRAWAL SYNDROME [None]
